FAERS Safety Report 9983075 (Version 1)
Quarter: 2014Q1

REPORT INFORMATION
  Report Type: Report from Study
  Country: US (occurrence: US)
  Receive Date: 20140307
  Receipt Date: 20140307
  Transmission Date: 20141002
  Serious: No
  Sender: FDA-Public Use
  Company Number: US-ABBVIE-13P-163-1176589-00

PATIENT
  Age: 56 Year
  Sex: Female

DRUGS (11)
  1. CARVEDIOL [Concomitant]
     Indication: CARDIAC DISORDER
  2. HYDROCHLOROTHIAZIDE [Concomitant]
     Indication: HYPERTENSION
  3. LEVOTHYROXINE [Concomitant]
     Indication: HYPOTHYROIDISM
  4. VITAMIN D3 [Concomitant]
     Indication: PRODUCT USED FOR UNKNOWN INDICATION
  5. FISH OIL [Concomitant]
     Indication: PRODUCT USED FOR UNKNOWN INDICATION
  6. HUMIRA [Suspect]
     Indication: RHEUMATOID ARTHRITIS
     Dates: start: 20131109
  7. PRAVASTATIN [Suspect]
     Indication: BLOOD CHOLESTEROL INCREASED
     Dates: end: 201312
  8. PRAVASTATIN [Suspect]
     Dates: start: 20131204
  9. ASA [Concomitant]
     Indication: PRODUCT USED FOR UNKNOWN INDICATION
  10. WAFARIN [Concomitant]
     Indication: ANTICOAGULANT THERAPY
     Dosage: 10 MG EVERY SUNDAY, MONDAY, WEDNESDAY, FRIDAY AND 7.5 MG EVERY TUESDAY, THURSDAY, SATURDAY
  11. METHOTREXATE [Concomitant]
     Indication: RHEUMATOID ARTHRITIS
     Dosage: 5 WEEKLY

REACTIONS (2)
  - Joint swelling [Not Recovered/Not Resolved]
  - Myalgia [Not Recovered/Not Resolved]
